FAERS Safety Report 7685292-8 (Version None)
Quarter: 2011Q3

REPORT INFORMATION
  Report Type: 
  Country: None (occurrence: None)
  Receive Date: 20110801
  Receipt Date: 20110801
  Transmission Date: 20111222
  Serious: Yes (Hospitalization)
  Sender: FDA-Public Use
  Company Number: AECAN201100208

PATIENT
  Age: 53 Year
  Sex: Male

DRUGS (2)
  1. IGIVNEX [Suspect]
     Indication: THROMBOCYTOPENIA
     Dosage: 15 GM;1X;IV
     Route: 042
     Dates: start: 20110526, end: 20110526
  2. IGIVNEX [Suspect]

REACTIONS (7)
  - HYPERSENSITIVITY [None]
  - DYSPNOEA [None]
  - COUGH [None]
  - PYREXIA [None]
  - HYPOTENSION [None]
  - CHILLS [None]
  - TACHYCARDIA [None]
